FAERS Safety Report 5730132-7 (Version None)
Quarter: 2008Q2

REPORT INFORMATION
  Report Type: 
  Country: None (occurrence: None)
  Receive Date: 20080507
  Receipt Date: 20080429
  Transmission Date: 20081010
  Serious: Yes (Hospitalization)
  Sender: FDA-Public Use
  Company Number: US-ROCHE-561522

PATIENT
  Sex: Female
  Weight: 90.7 kg

DRUGS (8)
  1. BONIVA [Suspect]
     Indication: OSTEOPOROSIS
     Route: 065
     Dates: start: 20050101
  2. LEXAPRO [Concomitant]
  3. IBUPROFEN TABLETS [Concomitant]
  4. PERCOCET [Concomitant]
  5. PERCOCET [Concomitant]
  6. ATIVAN [Concomitant]
  7. AMICAR [Concomitant]
  8. COUMADIN [Concomitant]

REACTIONS (1)
  - OVARIAN CANCER [None]
